FAERS Safety Report 22129313 (Version 2)
Quarter: 2023Q1

REPORT INFORMATION
  Report Type: Spontaneous
  Country: JP (occurrence: JP)
  Receive Date: 20230323
  Receipt Date: 20230329
  Transmission Date: 20230417
  Serious: Yes (Hospitalization, Other)
  Sender: FDA-Public Use
  Company Number: JP-GILEAD-2023-0621117

PATIENT
  Age: 63 Year
  Sex: Female

DRUGS (1)
  1. VEMLIDY [Suspect]
     Active Substance: TENOFOVIR ALAFENAMIDE FUMARATE
     Indication: Hepatitis B
     Dosage: 25 MG
     Route: 048
     Dates: start: 20181119

REACTIONS (2)
  - Gastric cancer [Unknown]
  - Ileus [Unknown]

NARRATIVE: CASE EVENT DATE: 20220828
